FAERS Safety Report 9636395 (Version 1)
Quarter: 2013Q4

REPORT INFORMATION
  Report Type: Spontaneous
  Country: DK (occurrence: FR)
  Receive Date: 20131021
  Receipt Date: 20131021
  Transmission Date: 20140711
  Serious: Yes (Death)
  Sender: FDA-Public Use
  Company Number: FR-FRI-1000050323

PATIENT
  Age: 38 Year
  Sex: Female

DRUGS (4)
  1. ESCITALOPRAM [Suspect]
     Indication: DEPRESSION
     Dosage: 1 DF
     Route: 048
     Dates: start: 2005, end: 20101002
  2. DROLEPTAN [Suspect]
     Indication: PROCEDURAL NAUSEA
     Dosage: 1 MG AT 03:00 A.M.
     Route: 042
     Dates: start: 20101002
  3. DEXAMETHASONE [Suspect]
     Indication: PROCEDURAL NAUSEA
     Dosage: 4 MG
     Route: 042
     Dates: start: 20101002
  4. MYOLASTAN [Suspect]
     Indication: ANXIETY
     Route: 048
     Dates: end: 20101002

REACTIONS (2)
  - Completed suicide [Fatal]
  - Drug level above therapeutic [Fatal]
